FAERS Safety Report 8579829-4 (Version None)
Quarter: 2012Q3

REPORT INFORMATION
  Report Type: 
  Country: None (occurrence: None)
  Receive Date: 20120808
  Receipt Date: 20120801
  Transmission Date: 20120928
  Serious: Yes (Other)
  Sender: FDA-Public Use
  Company Number: US-VERTEX PHARMACEUTICALS INC.-AE-2012-008478

PATIENT
  Sex: Female

DRUGS (5)
  1. RIBAVIRIN [Concomitant]
     Indication: HEPATITIS C
     Dates: start: 20111109
  2. RIBAVIRIN [Concomitant]
  3. PEGASYS [Concomitant]
     Indication: HEPATITIS C
     Dates: start: 20111109
  4. RIBAVIRIN [Concomitant]
  5. INCIVEK [Suspect]
     Indication: HEPATITIS C
     Route: 048
     Dates: start: 20111109, end: 20120201

REACTIONS (4)
  - DIARRHOEA [None]
  - ABDOMINAL PAIN [None]
  - DEHYDRATION [None]
  - ANAEMIA [None]
